FAERS Safety Report 6135966-5 (Version None)
Quarter: 2009Q1

REPORT INFORMATION
  Report Type: 
  Country: None (occurrence: None)
  Receive Date: 20090329
  Receipt Date: 20080417
  Transmission Date: 20090719
  Serious: No
  Sender: FDA-Public Use
  Company Number: US-BAUSCH-2008BL001712

PATIENT
  Age: 76 Year
  Sex: Female
  Weight: 65 kg

DRUGS (13)
  1. LOTEMAX [Suspect]
     Route: 047
     Dates: start: 20080101, end: 20080201
  2. LOTEMAX [Suspect]
     Route: 047
     Dates: start: 20080301, end: 20080407
  3. LOTEMAX [Suspect]
     Route: 047
     Dates: start: 20080408, end: 20080422
  4. DILANTIN [Concomitant]
     Indication: EPILEPSY
     Route: 048
     Dates: start: 19530417
  5. GABITRIL [Concomitant]
     Indication: EPILEPSY
     Route: 048
  6. LIPITOR [Concomitant]
     Indication: BLOOD CHOLESTEROL INCREASED
     Route: 048
     Dates: start: 20000417
  7. DIOVAN [Concomitant]
     Indication: HYPERTENSION
     Route: 048
     Dates: start: 20000417
  8. HYDROCHLOROTHIAZIDE [Concomitant]
     Indication: DIURETIC THERAPY
     Route: 048
     Dates: start: 20000417
  9. PRILOSEC [Concomitant]
     Route: 048
     Dates: start: 20070417
  10. LOVAZA [Concomitant]
  11. CALCIUM [Concomitant]
  12. VITAMIN D [Concomitant]
  13. MULTI-VITAMINS [Concomitant]

REACTIONS (1)
  - TOOTHACHE [None]
